FAERS Safety Report 14302648 (Version 1)
Quarter: 2017Q4

REPORT INFORMATION
  Report Type: Spontaneous
  Country: US (occurrence: US)
  Receive Date: 20171219
  Receipt Date: 20171219
  Transmission Date: 20180321
  Serious: No
  Sender: FDA-Public Use
  Company Number: None

PATIENT
  Age: 50 Year
  Sex: Female
  Weight: 54 kg

DRUGS (6)
  1. DAILY MULTIVITAMIN (RAINBOW LIGHT ACTIVE ADULT 50+) [Concomitant]
  2. ALAWAY KETOFEN FUMARATE EYE DROPS [Concomitant]
  3. OMEGA-3 ACIDS [Concomitant]
     Active Substance: OMEGA-3 FATTY ACIDS
  4. KRILL OIL [Concomitant]
     Active Substance: DIETARY SUPPLEMENT
  5. PROBIOTIC [Concomitant]
     Active Substance: PROBIOTICS NOS
  6. XYZAL ALLERGY 24HR [Suspect]
     Active Substance: LEVOCETIRIZINE DIHYDROCHLORIDE
     Indication: MULTIPLE ALLERGIES
     Dosage: ?          QUANTITY:.5 TABLET(S);?
     Route: 048
     Dates: start: 20171114, end: 20171214

REACTIONS (2)
  - Hyperacusis [None]
  - Tinnitus [None]

NARRATIVE: CASE EVENT DATE: 20171204
